FAERS Safety Report 6406863-2 (Version None)
Quarter: 2009Q4

REPORT INFORMATION
  Report Type: 
  Country: None (occurrence: None)
  Receive Date: 20091020
  Receipt Date: 20091012
  Transmission Date: 20100525
  Serious: Yes (Other)
  Sender: FDA-Public Use
  Company Number: US-ASTRAZENECA-2007UW16101

PATIENT
  Age: 17468 Day
  Sex: Female
  Weight: 96.2 kg

DRUGS (4)
  1. SEROQUEL [Suspect]
     Indication: DEPRESSION
     Route: 048
     Dates: start: 20031201, end: 20090301
  2. SEROQUEL [Suspect]
     Indication: INSOMNIA
     Route: 048
     Dates: start: 20031201, end: 20090301
  3. SEROQUEL [Suspect]
     Route: 048
     Dates: start: 20031201, end: 20090301
  4. LORAZEPAM [Concomitant]
     Dosage: 1MG - 2MG
     Dates: start: 20020101, end: 20050101

REACTIONS (4)
  - FRACTURE [None]
  - HIP SURGERY [None]
  - KNEE OPERATION [None]
  - TYPE 2 DIABETES MELLITUS [None]
